FAERS Safety Report 6550933-5 (Version None)
Quarter: 2010Q1

REPORT INFORMATION
  Report Type: 
  Country: None (occurrence: None)
  Receive Date: 20100125
  Receipt Date: 20100113
  Transmission Date: 20100710
  Serious: Yes (Hospitalization, Other)
  Sender: FDA-Public Use
  Company Number: SE-PFIZER INC-2010005129

PATIENT
  Age: 60 Year
  Sex: Female

DRUGS (3)
  1. PREDNISOLON [Suspect]
     Indication: EAR DISORDER
     Dosage: 10 MG, 3X/DAY
     Dates: start: 20091201
  2. SWINE FLU VACCINE, MONOVALENT [Concomitant]
  3. LASIX [Concomitant]
     Indication: HYPERTENSION
     Dosage: 30 MG, UNK

REACTIONS (8)
  - BALANCE DISORDER [None]
  - BLOOD PRESSURE INCREASED [None]
  - DEHYDRATION [None]
  - HYPERACUSIS [None]
  - SWELLING FACE [None]
  - THIRST [None]
  - TYPE 2 DIABETES MELLITUS [None]
  - VISUAL ACUITY REDUCED [None]
